FAERS Safety Report 5922828-9 (Version None)
Quarter: 2008Q4

REPORT INFORMATION
  Report Type: 
  Country: None (occurrence: None)
  Receive Date: 20081017
  Receipt Date: 20081008
  Transmission Date: 20090506
  Serious: Yes (Life-Threatening)
  Sender: FDA-Public Use
  Company Number: PL-B.I. PHARMACEUTICALS,INC./RIDGEFIELD-2008-BP-15879YA

PATIENT
  Sex: Male

DRUGS (7)
  1. OMNIC [Suspect]
     Indication: BENIGN PROSTATIC HYPERPLASIA
     Route: 048
     Dates: start: 20080825, end: 20080905
  2. DEBRIDAT (TRIMEBUTINE) [Concomitant]
  3. BISOHEXAL (BISOPROLOL FUMARATE) [Concomitant]
     Dosage: 5MG
  4. METFORMIN HYDROCHLORIDE [Concomitant]
     Dosage: 500MG
  5. LUCETAM (PIRACETAM) [Concomitant]
     Dosage: 1200MG
  6. NILOGRIN (NICERGOLINE) [Concomitant]
  7. POLPRAZOL (OMEPRAZOLE) [Concomitant]
     Dosage: 20MG

REACTIONS (3)
  - ALTERED STATE OF CONSCIOUSNESS [None]
  - BLOOD PRESSURE DECREASED [None]
  - LOSS OF CONSCIOUSNESS [None]
